FAERS Safety Report 5136475-2 (Version None)
Quarter: 2006Q4

REPORT INFORMATION
  Report Type: 
  Country: None (occurrence: None)
  Receive Date: 20061027
  Receipt Date: 20060818
  Transmission Date: 20070319
  Serious: Yes (Death)
  Sender: FDA-Public Use
  Company Number: CH-ABBOTT-06P-151-0341628-00

PATIENT
  Age: 2 Year
  Sex: Male

DRUGS (3)
  1. VALPROATE SODIUM [Suspect]
     Indication: DRUG USE FOR UNKNOWN INDICATION
     Dosage: NOT REPORTED
  2. VALPROATE SODIUM [Suspect]
     Indication: GRAND MAL CONVULSION
  3. VALPROATE SODIUM [Suspect]
     Indication: LENNOX-GASTAUT SYNDROME

REACTIONS (8)
  - COMA [None]
  - CONVULSION [None]
  - GRAND MAL CONVULSION [None]
  - HEPATIC CIRRHOSIS [None]
  - HEPATIC STEATOSIS [None]
  - HEPATOCELLULAR DAMAGE [None]
  - HEPATOTOXICITY [None]
  - STATUS EPILEPTICUS [None]
